FAERS Safety Report 23724173 (Version 1)
Quarter: 2024Q2

REPORT INFORMATION
  Report Type: Spontaneous
  Country: NL (occurrence: NL)
  Receive Date: 20240409
  Receipt Date: 20240409
  Transmission Date: 20240716
  Serious: Yes (Other)
  Sender: FDA-Public Use
  Company Number: None

PATIENT
  Age: 22 Year
  Sex: Male
  Weight: 132 kg

DRUGS (1)
  1. METOPROLOL [Suspect]
     Active Substance: METOPROLOL
     Indication: Heart rate increased
     Dosage: 50 MILLIGRAM, QD,(1/DAY,1/PIECE)
     Route: 065
     Dates: start: 20211220, end: 20240314

REACTIONS (6)
  - Mental impairment [Recovering/Resolving]
  - Brain fog [Recovering/Resolving]
  - Tobacco user [Recovering/Resolving]
  - Lacrimation increased [Recovering/Resolving]
  - Disturbance in attention [Recovering/Resolving]
  - Fatigue [Recovering/Resolving]
